FAERS Safety Report 8842893 (Version 3)
Quarter: 2012Q4

REPORT INFORMATION
  Report Type: 
  Country: US (occurrence: US)
  Receive Date: 20121016
  Receipt Date: 20121106
  Transmission Date: 20130627
  Serious: No
  Sender: FDA-Public Use
  Company Number: US-ASTRAZENECA-2012SE77049

PATIENT
  Age: 56 Year
  Sex: Male

DRUGS (4)
  1. SEROQUEL [Suspect]
     Indication: SLEEP DISORDER
     Route: 048
  2. SEROQUEL [Suspect]
     Indication: DEPRESSION
     Route: 048
  3. SEROQUEL [Suspect]
     Indication: SLEEP DISORDER
     Route: 048
  4. SEROQUEL [Suspect]
     Indication: DEPRESSION
     Route: 048

REACTIONS (8)
  - Malaise [Unknown]
  - Insomnia [Unknown]
  - Discomfort [Unknown]
  - Adverse event [Unknown]
  - Hot flush [Unknown]
  - Agitation [Unknown]
  - Tremor [Unknown]
  - Drug dose omission [Unknown]
